FAERS Safety Report 26122655 (Version 1)
Quarter: 2025Q4

REPORT INFORMATION
  Report Type: Spontaneous
  Country: US (occurrence: US)
  Receive Date: 20251204
  Receipt Date: 20251204
  Transmission Date: 20260117
  Serious: No
  Sender: FRESENIUS KABI
  Company Number: US-FreseniusKabi-FK202516013

PATIENT
  Age: 67 Year

DRUGS (2)
  1. ADALIMUMAB-AACF [Suspect]
     Active Substance: ADALIMUMAB-AACF
     Indication: Product used for unknown indication
     Dosage: FOA: KIT?INJECTION?AUTOINJECTOR PEN
  2. ADALIMUMAB-AACF [Suspect]
     Active Substance: ADALIMUMAB-AACF
     Dosage: FOA: KIT?INJECTION?AUTOINJECTOR PEN

REACTIONS (3)
  - Product dose omission issue [Unknown]
  - Accidental exposure to product [Unknown]
  - Injection site pain [Unknown]

NARRATIVE: CASE EVENT DATE: 20251111
